FAERS Safety Report 4722359-8 (Version None)
Quarter: 2005Q3

REPORT INFORMATION
  Report Type: 
  Country: None (occurrence: None)
  Receive Date: 20050722
  Receipt Date: 20050308
  Transmission Date: 20060218
  Serious: No
  Sender: FDA-Public Use
  Company Number: US-GLAXOSMITHKLINE-A0548822A

PATIENT
  Sex: Male

DRUGS (2)
  1. AVANDIA [Suspect]
     Route: 048
     Dates: start: 20040901
  2. GLUCOTROL XL [Concomitant]

REACTIONS (1)
  - DRUG INEFFECTIVE [None]
